FAERS Safety Report 10461628 (Version 2)
Quarter: 2014Q4

REPORT INFORMATION
  Report Type: Spontaneous
  Country: US (occurrence: US)
  Receive Date: 20140918
  Receipt Date: 20141202
  Transmission Date: 20150528
  Serious: Yes (Death, Hospitalization)
  Sender: FDA-Public Use
  Company Number: US-TEVA-508994USA

PATIENT
  Age: 9 Year
  Sex: Male

DRUGS (1)
  1. TREANDA [Suspect]
     Active Substance: BENDAMUSTINE HYDROCHLORIDE
     Indication: ACUTE LYMPHOCYTIC LEUKAEMIA
     Dosage: 120
     Route: 065
     Dates: end: 20140623

REACTIONS (2)
  - Haemorrhage [Fatal]
  - Respiratory distress [Fatal]

NARRATIVE: CASE EVENT DATE: 2014
